FAERS Safety Report 8811116 (Version 1)
Quarter: 2012Q4

REPORT INFORMATION
  Report Type: Spontaneous
  Country: US (occurrence: None)
  Receive Date: 20120925
  Receipt Date: 20120925
  Transmission Date: 20130627
  Serious: Yes (Hospitalization, Other)
  Sender: FDA-Public Use
  Company Number: None

PATIENT

DRUGS (1)
  1. BENZALKONIUM CHLORIDE [Suspect]
     Indication: THERAPEUTIC SKIN CARE TOPICAL
     Dosage: q24 top
     Route: 061

REACTIONS (1)
  - Burkholderia cepacia complex infection [None]
